FAERS Safety Report 23109625 (Version 1)
Quarter: 2023Q4

REPORT INFORMATION
  Report Type: Report from Study
  Country: US (occurrence: US)
  Receive Date: 20231026
  Receipt Date: 20231026
  Transmission Date: 20240110
  Serious: Yes (Other)
  Sender: FDA-Public Use
  Company Number: US-ABBVIE-5455903

PATIENT
  Age: 19 Year
  Sex: Female

DRUGS (1)
  1. HUMIRA [Suspect]
     Active Substance: ADALIMUMAB
     Indication: Hidradenitis
     Dosage: FORM STRENGTH: 40 MILLIGRAM,
     Route: 058
     Dates: start: 20230821

REACTIONS (3)
  - Ovarian cyst ruptured [Unknown]
  - Hepatic enzyme increased [Unknown]
  - Adnexal torsion [Unknown]

NARRATIVE: CASE EVENT DATE: 20231012
